FAERS Safety Report 25769064 (Version 1)
Quarter: 2025Q3

REPORT INFORMATION
  Report Type: Spontaneous
  Country: EU (occurrence: EU)
  Receive Date: 20250905
  Receipt Date: 20250905
  Transmission Date: 20251021
  Serious: Yes (Hospitalization, Other)
  Sender: AMGEN
  Company Number: EU-AMGEN-NORSP2025171753

PATIENT
  Age: 33 Year
  Sex: Female
  Weight: 77 kg

DRUGS (1)
  1. ADALIMUMAB [Suspect]
     Active Substance: ADALIMUMAB
     Indication: Colitis ulcerative
     Dosage: 40 MILLIGRAM, Q2WK (NE PEN EV ERY 2 WEEKS. 4/2 PENS IN THE START)
     Route: 058
     Dates: start: 202503, end: 202505

REACTIONS (10)
  - Skin irritation [Recovered/Resolved]
  - Rash macular [Recovered/Resolved]
  - Pyoderma gangrenosum [Recovering/Resolving]
  - Alopecia [Recovered/Resolved]
  - Erythema [Recovered/Resolved]
  - Pustule [Unknown]
  - Abscess [Unknown]
  - Wound [Unknown]
  - Pain [Unknown]
  - Swelling [Unknown]

NARRATIVE: CASE EVENT DATE: 20250522
